FAERS Safety Report 16749330 (Version 2)
Quarter: 2019Q3

REPORT INFORMATION
  Report Type: Spontaneous
  Country: BR (occurrence: BR)
  Receive Date: 20190828
  Receipt Date: 20190904
  Transmission Date: 20191005
  Serious: Yes (Other)
  Sender: FDA-Public Use
  Company Number: BR-PFIZER INC-2019363221

PATIENT
  Age: 45 Year
  Sex: Female
  Weight: 72 kg

DRUGS (3)
  1. EUTHYROX [Concomitant]
     Active Substance: LEVOTHYROXINE SODIUM
     Dosage: UNK
     Dates: start: 1999
  2. ABLOK [Concomitant]
     Active Substance: ATENOLOL
     Dosage: UNK
     Dates: start: 2018
  3. ZOLOFT [Suspect]
     Active Substance: SERTRALINE HYDROCHLORIDE
     Indication: ANXIETY DISORDER
     Dosage: 50 MG, DAILY (1 TABLET PER DAY)
     Dates: start: 201907, end: 20190815

REACTIONS (2)
  - Postprandial hypoglycaemia [Recovered/Resolved]
  - Syncope [Recovered/Resolved]

NARRATIVE: CASE EVENT DATE: 20190805
